FAERS Safety Report 6111853-3 (Version None)
Quarter: 2009Q1

REPORT INFORMATION
  Report Type: 
  Country: None (occurrence: None)
  Receive Date: 20090311
  Receipt Date: 20090304
  Transmission Date: 20090719
  Serious: Yes (Hospitalization, Other)
  Sender: FDA-Public Use
  Company Number: BR-ABBOTT-09P-020-0496064-00

PATIENT
  Sex: Female
  Weight: 41 kg

DRUGS (3)
  1. HUMIRA [Suspect]
     Indication: CROHN'S DISEASE
     Route: 058
     Dates: start: 20081203, end: 20090101
  2. CIPROFLOXACIN [Concomitant]
     Indication: DRUG USE FOR UNKNOWN INDICATION
  3. AZATHIOPRINE [Concomitant]
     Indication: DRUG USE FOR UNKNOWN INDICATION

REACTIONS (10)
  - CHOLECYSTECTOMY [None]
  - DIZZINESS [None]
  - HAEMORRHAGE [None]
  - INTESTINAL OPERATION [None]
  - INTESTINAL STENOSIS [None]
  - OOPHORECTOMY [None]
  - PANCREATIC NEOPLASM [None]
  - SUTURE RUPTURE [None]
  - VOMITING [None]
  - WEIGHT DECREASED [None]
